FAERS Safety Report 9490812 (Version 1)
Quarter: 2013Q3

REPORT INFORMATION
  Report Type: Spontaneous
  Country: JP (occurrence: JP)
  Receive Date: 20130830
  Receipt Date: 20130830
  Transmission Date: 20140515
  Serious: Yes (Hospitalization)
  Sender: FDA-Public Use
  Company Number: JP-BAYER-2013-102124

PATIENT
  Age: 81 Year
  Sex: Female

DRUGS (8)
  1. BAYASPIRIN [Suspect]
     Indication: MYOCARDIAL INFARCTION
     Route: 048
  2. BAYASPIRIN [Suspect]
     Indication: CORONARY ARTERIAL STENT INSERTION
  3. PLAVIX [Suspect]
     Indication: MYOCARDIAL INFARCTION
     Route: 048
  4. PLAVIX [Suspect]
     Indication: CORONARY ARTERIAL STENT INSERTION
  5. WARFARIN [Suspect]
     Indication: MYOCARDIAL INFARCTION
     Route: 048
  6. WARFARIN [Suspect]
     Indication: CORONARY ARTERIAL STENT INSERTION
  7. XYLOCAINE [Concomitant]
     Indication: LOCAL ANAESTHESIA
     Dosage: 5 ML, UNK
     Dates: start: 201107
  8. UNFRACTIONATED HEPARIN [Concomitant]
     Dosage: 10000 UNITS, PER DAY
     Dates: start: 2011, end: 2011

REACTIONS (3)
  - Vitreous haemorrhage [None]
  - Corneal deposits [None]
  - Labelled drug-drug interaction medication error [None]
